FAERS Safety Report 15825201 (Version 3)
Quarter: 2019Q3

REPORT INFORMATION
  Report Type: Spontaneous
  Country: US (occurrence: US)
  Receive Date: 20190115
  Receipt Date: 20190730
  Transmission Date: 20191004
  Serious: Yes (Hospitalization)
  Sender: FDA-Public Use
  Company Number: US-PFIZER INC-2019013880

PATIENT
  Age: 23 Year
  Sex: Female

DRUGS (2)
  1. DEPO-PROVERA [Suspect]
     Active Substance: MEDROXYPROGESTERONE ACETATE
     Dosage: 1 DF, UNK (ONE INJECTION TWO WEEKS AGO)
     Route: 030
  2. DEPO-PROVERA [Suspect]
     Active Substance: MEDROXYPROGESTERONE ACETATE
     Indication: DYSMENORRHOEA
     Dosage: 1 DF, UNK (ONE INJECTION 3 AND A HALF MONTHS AGO)
     Route: 030

REACTIONS (3)
  - Off label use [Unknown]
  - Abdominal pain [Unknown]
  - Product use in unapproved indication [Unknown]
